FAERS Safety Report 6164080-8 (Version None)
Quarter: 2009Q2

REPORT INFORMATION
  Report Type: 
  Country: None (occurrence: None)
  Receive Date: 20090422
  Receipt Date: 20090416
  Transmission Date: 20091009
  Serious: Yes (Hospitalization)
  Sender: FDA-Public Use
  Company Number: A0778936A

PATIENT
  Age: 37 Year
  Sex: Female

DRUGS (2)
  1. PAXIL CR [Suspect]
     Indication: DEPRESSION
     Dosage: 180MG VARIABLE DOSE
     Route: 048
     Dates: start: 20090101, end: 20090319
  2. BLOOD PRESSURE MEDICATION [Concomitant]

REACTIONS (5)
  - DISTURBANCE IN ATTENTION [None]
  - HEADACHE [None]
  - HYPERTENSION [None]
  - MEMORY IMPAIRMENT [None]
  - SOMNOLENCE [None]
